FAERS Safety Report 8506394-X (Version None)
Quarter: 2012Q3

REPORT INFORMATION
  Report Type: 
  Country: None (occurrence: None)
  Receive Date: 20120702
  Receipt Date: 20120621
  Transmission Date: 20120928
  Serious: Yes (Hospitalization, Other)
  Sender: FDA-Public Use
  Company Number: ACO_30823_2012

PATIENT
  Age: 54 Year
  Sex: Male

DRUGS (4)
  1. THYROID THERAPY [Concomitant]
  2. AMPYRA [Suspect]
     Indication: GAIT DISTURBANCE
     Dosage: 10MG, BID, ORAL
     Route: 048
     Dates: start: 20110601, end: 20120406
  3. LIPID MODIFYING AGENTS [Concomitant]
  4. ERGOCALCIFEROL [Concomitant]

REACTIONS (3)
  - INFECTION [None]
  - FEMUR FRACTURE [None]
  - FALL [None]
